FAERS Safety Report 17591970 (Version 6)
Quarter: 2020Q4

REPORT INFORMATION
  Report Type: Report from Study
  Country: US (occurrence: US)
  Receive Date: 20200327
  Receipt Date: 20201120
  Transmission Date: 20210113
  Serious: Yes (Hospitalization)
  Sender: FDA-Public Use
  Company Number: US-VERTEX PHARMACEUTICALS-2020-003815

PATIENT
  Age: 16 Year
  Sex: Male

DRUGS (2)
  1. INSULIN [Concomitant]
     Active Substance: INSULIN NOS
     Indication: DIABETES MELLITUS
     Dosage: 4 UNITS
  2. TRIKAFTA [Suspect]
     Active Substance: ELEXACAFTOR\IVACAFTOR\TEZACAFTOR
     Indication: CYSTIC FIBROSIS
     Dosage: 100MG ELEXACAFTOR/ 50MG TEZACAFTOR/ 75MG IVACAFTOR; 150MG IVACAFTOR (FREQUENCY UNSPECIFIED)
     Route: 048
     Dates: start: 20191213

REACTIONS (6)
  - Blood glucose increased [Recovering/Resolving]
  - Influenza [Unknown]
  - Blood creatinine increased [Unknown]
  - Renal disorder [Recovered/Resolved]
  - Dehydration [Recovering/Resolving]
  - Liver function test increased [Not Recovered/Not Resolved]

NARRATIVE: CASE EVENT DATE: 202001
